FAERS Safety Report 4669044-9 (Version None)
Quarter: 2005Q2

REPORT INFORMATION
  Report Type: 
  Country: None (occurrence: None)
  Receive Date: 20050519
  Receipt Date: 20050509
  Transmission Date: 20051028
  Serious: Yes (Hospitalization)
  Sender: FDA-Public Use
  Company Number: 2005073119

PATIENT
  Age: 85 Year
  Sex: Male
  Weight: 55.2 kg

DRUGS (1)
  1. CLINDAMYCIN HYDROCHLORIDE [Suspect]
     Indication: ARTHRITIS BACTERIAL
     Dosage: 500 MG ORAL
     Route: 048
     Dates: start: 20050408, end: 20050414

REACTIONS (4)
  - ACTIVATED PARTIAL THROMBOPLASTIN TIME PROLONGED [None]
  - COAGULOPATHY [None]
  - INTERNATIONAL NORMALISED RATIO INCREASED [None]
  - PROTHROMBIN TIME PROLONGED [None]
